FAERS Safety Report 25989750 (Version 2)
Quarter: 2025Q4

REPORT INFORMATION
  Report Type: Spontaneous
  Country: US (occurrence: US)
  Receive Date: 20251103
  Receipt Date: 20251201
  Transmission Date: 20260117
  Serious: Yes (Other)
  Sender: CIPLA
  Company Number: US-CIPLA (EU) LIMITED-2025US13520

PATIENT

DRUGS (1)
  1. LENALIDOMIDE [Suspect]
     Active Substance: LENALIDOMIDE
     Indication: Plasma cell myeloma
     Dosage: 10 MILLIGRAM, QD FOR 21 DAYS THEN 7 DAYS OFF
     Route: 048

REACTIONS (5)
  - Cataract [Unknown]
  - Neuropathy peripheral [Unknown]
  - Scoliosis [Unknown]
  - Osteoporosis [Unknown]
  - Spinal stenosis [Unknown]
